FAERS Safety Report 9241554 (Version 2)
Quarter: 2013Q2

REPORT INFORMATION
  Report Type: Spontaneous
  Country: US (occurrence: US)
  Receive Date: 20130419
  Receipt Date: 20130430
  Transmission Date: 20140414
  Serious: Yes (Hospitalization, Other)
  Sender: FDA-Public Use
  Company Number: US-NAPPMUNDI-USA-2013-0101225

PATIENT
  Sex: Female

DRUGS (3)
  1. OXYCONTIN TABLETS [Suspect]
     Indication: PAIN
     Dosage: 20 MG, UNK
     Route: 048
  2. OXYCONTIN TABLETS [Suspect]
     Dosage: 40 MG, SEE TEXT
     Route: 048
     Dates: start: 2000
  3. XANAX [Concomitant]
     Indication: POST-TRAUMATIC STRESS DISORDER
     Dosage: 2 MG, BID
     Route: 048
     Dates: start: 1986

REACTIONS (1)
  - Myocardial infarction [Unknown]
